FAERS Safety Report 8143673-2 (Version None)
Quarter: 2012Q1

REPORT INFORMATION
  Report Type: 
  Country: None (occurrence: None)
  Receive Date: 20120217
  Receipt Date: 20120216
  Transmission Date: 20120608
  Serious: Yes (Death)
  Sender: FDA-Public Use
  Company Number: US-B.I. PHARMACEUTICALS,INC./RIDGEFIELD-2012-BP-03004BP

PATIENT
  Age: 87 Year
  Sex: Female

DRUGS (1)
  1. PRADAXA [Suspect]
     Dates: start: 20111025

REACTIONS (1)
  - HAEMORRHAGE INTRACRANIAL [None]
